FAERS Safety Report 7513539-7 (Version None)
Quarter: 2011Q2

REPORT INFORMATION
  Report Type: 
  Country: None (occurrence: None)
  Receive Date: 20110531
  Receipt Date: 20110519
  Transmission Date: 20111010
  Serious: Yes (Hospitalization, Other)
  Sender: FDA-Public Use
  Company Number: US-BAYER-201041945NA

PATIENT
  Age: 38 Year
  Sex: Female
  Weight: 92.971 kg

DRUGS (4)
  1. YAZ [Suspect]
     Indication: PRODUCT USED FOR UNKNOWN INDICATION
     Dosage: UNK
     Route: 048
     Dates: start: 20080101, end: 20081101
  2. FERROUS SULFATE TAB [Concomitant]
     Indication: ANAEMIA
     Dosage: 325 MG, BID
     Dates: start: 20081127
  3. MULTI-VITAMIN [Concomitant]
     Indication: ANAEMIA
     Dosage: UNK
     Dates: start: 20081127
  4. YASMIN [Suspect]
     Indication: PRODUCT USED FOR UNKNOWN INDICATION
     Dosage: UNK
     Route: 048
     Dates: start: 20080101, end: 20081101

REACTIONS (2)
  - THROMBOSIS [None]
  - CEREBROVASCULAR ACCIDENT [None]
